FAERS Safety Report 15219443 (Version 2)
Quarter: 2018Q3

REPORT INFORMATION
  Report Type: Spontaneous
  Country: US (occurrence: US)
  Receive Date: 20180731
  Receipt Date: 20180907
  Transmission Date: 20181010
  Serious: No
  Sender: FDA-Public Use
  Company Number: US-009507513-1807USA012819

PATIENT
  Age: 50 Year
  Sex: Female
  Weight: 50 kg

DRUGS (1)
  1. NEXPLANON [Suspect]
     Active Substance: ETONOGESTREL
     Indication: DYSFUNCTIONAL UTERINE BLEEDING
     Dosage: ONE IMPLANT EVERY 3 YEARS
     Route: 059
     Dates: start: 20180207

REACTIONS (7)
  - Product use in unapproved indication [Unknown]
  - Headache [Not Recovered/Not Resolved]
  - Breast tenderness [Unknown]
  - Weight increased [Not Recovered/Not Resolved]
  - Breast pain [Not Recovered/Not Resolved]
  - Menorrhagia [Not Recovered/Not Resolved]
  - Amenorrhoea [Recovered/Resolved]

NARRATIVE: CASE EVENT DATE: 2018
